FAERS Safety Report 15974650 (Version 1)
Quarter: 2019Q1

REPORT INFORMATION
  Report Type: Spontaneous
  Country: NL (occurrence: NL)
  Receive Date: 20190218
  Receipt Date: 20190218
  Transmission Date: 20190418
  Serious: Yes (Other)
  Sender: FDA-Public Use
  Company Number: NL-TEVA-2019-NL-1012219

PATIENT
  Sex: Male
  Weight: 81 kg

DRUGS (5)
  1. OMEPRAZOL MAAGSAPRESISTENTE CAPSULE, 20 MG (MILLIGRAM) [Suspect]
     Active Substance: OMEPRAZOLE SODIUM
     Indication: PROPHYLAXIS
     Dosage: 1 DOSAGE FORMS DAILY;
     Dates: start: 20180125, end: 201806
  2. DICLOFENAC 25 MG [Concomitant]
     Dosage: 4 X PER DAY 1 TABLET
     Dates: start: 2008
  3. ENTOCORT 3 MG [Concomitant]
     Dosage: 1 X PER DAY 0-3 CAPSULES
     Dates: start: 20180125
  4. VENLAFAXINE [Concomitant]
     Active Substance: VENLAFAXINE HYDROCHLORIDE
     Dosage: 75 MILLIGRAM DAILY;
  5. PARACETAMOL 500 MG [Concomitant]
     Active Substance: ACETAMINOPHEN
     Dosage: 4 X PER DAY 1 TABLET
     Dates: start: 2018

REACTIONS (2)
  - Depressed mood [Recovered/Resolved]
  - Suicidal ideation [Recovered/Resolved]
